APPROVED DRUG PRODUCT: LIOTHYRONINE SODIUM
Active Ingredient: LIOTHYRONINE SODIUM
Strength: EQ 0.025MG BASE
Dosage Form/Route: TABLET;ORAL
Application: A091382 | Product #002 | TE Code: AB
Applicant: SUN PHARMACEUTICAL INDUSTRIES LTD
Approved: Apr 20, 2016 | RLD: No | RS: No | Type: RX